FAERS Safety Report 4837339-1 (Version None)
Quarter: 2005Q4

REPORT INFORMATION
  Report Type: 
  Country: None (occurrence: None)
  Receive Date: 20051128
  Receipt Date: 20051116
  Transmission Date: 20060501
  Serious: Yes (Hospitalization, Other)
  Sender: FDA-Public Use
  Company Number: GB-JNJFOC-20051103955

PATIENT
  Sex: Female
  Weight: 79 kg

DRUGS (14)
  1. REMICADE [Suspect]
     Indication: RHEUMATOID ARTHRITIS
     Route: 042
  2. CYCLOPHOSPHAMIDE [Concomitant]
     Route: 065
  3. SULFASALAZINE [Concomitant]
     Route: 065
  4. METHOTREXATE [Concomitant]
     Route: 065
  5. BISOPROLOL [Concomitant]
     Route: 065
  6. CO-CODAMOL [Concomitant]
     Route: 065
  7. CO-CODAMOL [Concomitant]
     Route: 065
  8. DIAZEPAM [Concomitant]
     Route: 065
  9. FOLIC ACID [Concomitant]
     Route: 065
  10. FRUSEMIDE [Concomitant]
     Route: 065
  11. HYDROXYCHLOROQUINE SULFATE [Concomitant]
     Route: 065
  12. LOSEC [Concomitant]
     Route: 065
  13. NAPROXEN [Concomitant]
     Route: 065
  14. AZATHIOPRINE [Concomitant]

REACTIONS (1)
  - BREAST CANCER [None]
